FAERS Safety Report 5291842-1 (Version None)
Quarter: 2007Q2

REPORT INFORMATION
  Report Type: 
  Country: None (occurrence: None)
  Receive Date: 20070410
  Receipt Date: 20070328
  Transmission Date: 20071010
  Serious: Yes (Hospitalization)
  Sender: FDA-Public Use
  Company Number: US-ELI_LILLY_AND_COMPANY-US200703005974

PATIENT
  Sex: Female

DRUGS (3)
  1. FORTEO [Suspect]
  2. PLAVIX [Concomitant]
  3. ADVIL                              /00109201/ [Concomitant]

REACTIONS (1)
  - HAEMORRHAGE [None]
